FAERS Safety Report 8436843-7 (Version None)
Quarter: 2012Q2

REPORT INFORMATION
  Report Type: 
  Country: None (occurrence: None)
  Receive Date: 20120614
  Receipt Date: 20120608
  Transmission Date: 20120825
  Serious: Yes (Other)
  Sender: FDA-Public Use
  Company Number: US-BAYER-2011-104159

PATIENT
  Age: 59 Year
  Sex: Male

DRUGS (20)
  1. VERAPAMIL [Concomitant]
  2. MAGNEVIST [Suspect]
  3. GADOLINIUM IN UNSPECIFIED DRUG [Suspect]
     Indication: ANGIOGRAM PERIPHERAL
     Dosage: UNK
     Dates: start: 20031024, end: 20031024
  4. MINOXIDIL [Concomitant]
  5. INSULIN [Concomitant]
  6. SENSIPAR [Concomitant]
  7. OPTIMARK [Suspect]
  8. ALBUTEROL [Concomitant]
  9. CALCITRIOL [Concomitant]
  10. EPOGEN [Concomitant]
  11. LANOXIN [Concomitant]
  12. RENAGEL [Concomitant]
  13. COUMADIN [Concomitant]
     Indication: ATRIAL FIBRILLATION
  14. IRON SULFATETHIAMIN COMPOUND TAB [Concomitant]
  15. GLYBURIDE [Concomitant]
  16. CLONIDINE [Concomitant]
  17. FLOVENT [Concomitant]
  18. LASIX [Concomitant]
  19. OMNISCAN [Suspect]
  20. GADOLINIUM IN UNSPECIFIED DRUG [Suspect]
     Indication: ANGIOGRAM
     Dosage: UNK
     Dates: start: 20030717, end: 20030717

REACTIONS (13)
  - POST THROMBOTIC SYNDROME [None]
  - VENOUS INSUFFICIENCY [None]
  - INDURATION [None]
  - CEREBROVASCULAR ACCIDENT [None]
  - CARDIOGENIC SHOCK [None]
  - NEPHROGENIC SYSTEMIC FIBROSIS [None]
  - FIBROSIS [None]
  - HEMIPARESIS [None]
  - SKIN DISCOLOURATION [None]
  - ATRIAL FIBRILLATION [None]
  - CARDIOMYOPATHY [None]
  - MUSCULAR WEAKNESS [None]
  - CORONARY ARTERY DISEASE [None]
